FAERS Safety Report 20652907 (Version 7)
Quarter: 2024Q2

REPORT INFORMATION
  Report Type: Other
  Country: AU (occurrence: None)
  Receive Date: 20220330
  Receipt Date: 20240419
  Transmission Date: 20240716
  Serious: Yes (Death, Hospitalization)
  Sender: FDA-Public Use
  Company Number: AU-ROCHE-3056774

PATIENT
  Age: 34 Year
  Sex: Male

DRUGS (10)
  1. BEVACIZUMAB [Suspect]
     Active Substance: BEVACIZUMAB
     Indication: Non-small cell lung cancer metastatic
     Route: 065
     Dates: start: 20211101, end: 20211121
  2. BEVACIZUMAB [Suspect]
     Active Substance: BEVACIZUMAB
     Dosage: CYCLE 1
     Route: 065
     Dates: start: 19991217, end: 20000106
  3. ATEZOLIZUMAB [Suspect]
     Active Substance: ATEZOLIZUMAB
     Indication: Non-small cell lung cancer metastatic
     Route: 065
     Dates: start: 20211101, end: 20211121
  4. ATEZOLIZUMAB [Suspect]
     Active Substance: ATEZOLIZUMAB
     Dosage: CYCLE 1
     Route: 065
     Dates: start: 19991217, end: 20000106
  5. ATEZOLIZUMAB [Suspect]
     Active Substance: ATEZOLIZUMAB
     Dosage: CYCLE 2-4
     Route: 065
     Dates: start: 20000116, end: 20000403
  6. ATEZOLIZUMAB [Suspect]
     Active Substance: ATEZOLIZUMAB
     Dosage: CYCLE 8
     Route: 065
     Dates: start: 20220530
  7. PACLITAXEL [Suspect]
     Active Substance: PACLITAXEL
     Indication: Non-small cell lung cancer metastatic
     Dosage: CYCLE 1
     Route: 065
     Dates: start: 19991217, end: 20000106
  8. PACLITAXEL [Suspect]
     Active Substance: PACLITAXEL
     Dosage: CYCLE 2-4
     Route: 065
     Dates: start: 20000106, end: 20000403
  9. CARBOPLATIN [Suspect]
     Active Substance: CARBOPLATIN
     Indication: Non-small cell lung cancer metastatic
     Route: 065
  10. ENTRECTINIB [Suspect]
     Active Substance: ENTRECTINIB
     Indication: Non-small cell lung cancer metastatic
     Dosage: 600MG; REDUCED TO 400MG, 30/6/2021. STILL ON AS OF 6/04/2022
     Route: 065
     Dates: start: 20000502

REACTIONS (2)
  - Acute coronary syndrome [Unknown]
  - Death [Fatal]
